FAERS Safety Report 10100728 (Version 3)
Quarter: 2015Q3

REPORT INFORMATION
  Report Type: Spontaneous
  Country: CA (occurrence: CA)
  Receive Date: 20140423
  Receipt Date: 20150803
  Transmission Date: 20151125
  Serious: Yes (Death, Other)
  Sender: FDA-Public Use
  Company Number: PHHY2014CA046513

PATIENT
  Sex: Female

DRUGS (2)
  1. HYDROMORPHONE HCL INJ USP [Suspect]
     Active Substance: HYDROMORPHONE HYDROCHLORIDE
     Indication: PRODUCT USED FOR UNKNOWN INDICATION
     Dosage: 2 MG/ML
     Route: 065
  2. HALOPERIDOL. [Suspect]
     Active Substance: HALOPERIDOL
     Indication: PRODUCT USED FOR UNKNOWN INDICATION
     Dosage: 100 MG/ML
     Route: 065

REACTIONS (3)
  - Death [Fatal]
  - Wrong drug administered [Fatal]
  - Extrapyramidal disorder [Fatal]

NARRATIVE: CASE EVENT DATE: 201404
